FAERS Safety Report 9781898 (Version 1)
Quarter: 2013Q4

REPORT INFORMATION
  Report Type: Spontaneous
  Country: US (occurrence: US)
  Receive Date: 20131225
  Receipt Date: 20131225
  Transmission Date: 20140711
  Serious: No
  Sender: FDA-Public Use
  Company Number: US-B.I. PHARMACEUTICALS,INC./RIDGEFIELD-2013-BI-42052BP

PATIENT
  Age: 74 Year
  Sex: Male
  Weight: 71 kg

DRUGS (5)
  1. PRADAXA [Suspect]
     Indication: ATRIAL FIBRILLATION
     Dosage: 300 MG
     Route: 048
     Dates: start: 201208
  2. LOSARTAN/HCTZ [Concomitant]
     Indication: HYPERTENSION
     Dosage: STRENGTH: 100-25 MG; DAILY DOSE: 100-25 MG
     Route: 048
  3. ALLOPURINOL [Concomitant]
     Indication: GOUT
     Dosage: 100 MG
     Route: 048
  4. VERAPAMIL [Concomitant]
     Indication: HYPERTENSION
     Dosage: 240 MG
     Route: 048
  5. CALCIUM/VITAMIN D [Concomitant]
     Dosage: 600 MG
     Route: 048

REACTIONS (1)
  - Hearing impaired [Not Recovered/Not Resolved]
